FAERS Safety Report 8644920 (Version 2)
Quarter: 2012Q4

REPORT INFORMATION
  Report Type: Spontaneous
  Country: US (occurrence: None)
  Receive Date: 20120619
  Receipt Date: 20121207
  Transmission Date: 20130627
  Serious: Yes (Death)
  Sender: FDA-Public Use
  Company Number: 2012-277

PATIENT
  Age: 70 Year
  Sex: Male
  Weight: 84.4 kg

DRUGS (1)
  1. FAZACLO [Suspect]
     Indication: SCHIZOAFFECTIVE DISORDER
     Dosage: 200-400 MG, QD, ORAL
     Route: 048
     Dates: start: 20080617, end: 20120512

REACTIONS (1)
  - Death [None]
